FAERS Safety Report 19630903 (Version 1)
Quarter: 2021Q3

REPORT INFORMATION
  Report Type: Spontaneous
  Country: US (occurrence: US)
  Receive Date: 20210728
  Receipt Date: 20210728
  Transmission Date: 20211014
  Serious: No
  Sender: FDA-Public Use
  Company Number: US-SA-2021SA246625

PATIENT
  Age: 53 Year
  Sex: Male

DRUGS (1)
  1. DUPIXENT [Suspect]
     Active Substance: DUPILUMAB
     Indication: SKIN LESION
     Dosage: 300 MG

REACTIONS (4)
  - Psoriasis [Unknown]
  - Product use in unapproved indication [Unknown]
  - Skin lesion [Unknown]
  - Condition aggravated [Unknown]
